FAERS Safety Report 20545001 (Version 1)
Quarter: 2022Q1

REPORT INFORMATION
  Report Type: Spontaneous
  Country: US (occurrence: US)
  Receive Date: 20220303
  Receipt Date: 20220303
  Transmission Date: 20220423
  Serious: No
  Sender: FDA-Public Use
  Company Number: US-ALLERGAN-2139886US

PATIENT
  Age: 7 Decade
  Sex: Female

DRUGS (3)
  1. RESTASIS [Suspect]
     Active Substance: CYCLOSPORINE
     Indication: Dry eye
     Dosage: 2 GTT, QHS
     Route: 047
     Dates: start: 2021, end: 2021
  2. A statin [Concomitant]
  3. SYNTHROID [Concomitant]
     Active Substance: LEVOTHYROXINE SODIUM

REACTIONS (6)
  - Inappropriate schedule of product administration [Unknown]
  - Visual impairment [Recovered/Resolved]
  - Drug hypersensitivity [Recovered/Resolved]
  - Eye irritation [Recovered/Resolved]
  - Eye pain [Recovered/Resolved]
  - Ocular hyperaemia [Recovered/Resolved]

NARRATIVE: CASE EVENT DATE: 20210101
